FAERS Safety Report 24644492 (Version 2)
Quarter: 2024Q4

REPORT INFORMATION
  Report Type: Spontaneous
  Country: MX (occurrence: MX)
  Receive Date: 20241121
  Receipt Date: 20241202
  Transmission Date: 20250115
  Serious: Yes (Other)
  Sender: NOVO NORDISK
  Company Number: MX-NOVOPROD-1317997

PATIENT
  Age: 36 Year
  Sex: Male
  Weight: 83 kg

DRUGS (2)
  1. RYZODEG 70/30 [Suspect]
     Active Substance: INSULIN ASPART\INSULIN DEGLUDEC
     Indication: Type 1 diabetes mellitus
     Dosage: DOSAGE; NOT SPECIFIED
     Route: 058
  2. INSULIN GLULISINE [Concomitant]
     Active Substance: INSULIN GLULISINE
     Dosage: DOSAGE: ACCORDING TO CALORIES, ONLY AT NIGHT.

REACTIONS (5)
  - Vision blurred [Unknown]
  - Visual impairment [Unknown]
  - Cataract [Unknown]
  - Eye haemorrhage [Unknown]
  - Intraocular pressure increased [Unknown]
